FAERS Safety Report 10953972 (Version 1)
Quarter: 2015Q1

REPORT INFORMATION
  Report Type: Spontaneous
  Country: US (occurrence: None)
  Receive Date: 20150226
  Receipt Date: 20150226
  Transmission Date: 20150721
  Serious: Yes (Hospitalization)
  Sender: FDA-Public Use
  Company Number: TPA2007Q01112

PATIENT
  Age: 54 Year
  Sex: Male
  Weight: 77.1 kg

DRUGS (1)
  1. PREVACID [Suspect]
     Active Substance: LANSOPRAZOLE
     Indication: ULCER
     Dosage: 1 IN 1 D
     Route: 048
     Dates: start: 19970801, end: 19970804

REACTIONS (3)
  - Myocardial infarction [None]
  - Chest pain [None]
  - Dyspnoea [None]

NARRATIVE: CASE EVENT DATE: 19970804
